FAERS Safety Report 8278508-0 (Version None)
Quarter: 2012Q2

REPORT INFORMATION
  Report Type: 
  Country: None (occurrence: None)
  Receive Date: 20120412
  Receipt Date: 20110728
  Transmission Date: 20120825
  Serious: No
  Sender: FDA-Public Use
  Company Number: US-ASTRAZENECA-2011SE45076

PATIENT
  Age: 76 Year
  Sex: Male
  Weight: 84.4 kg

DRUGS (1)
  1. NEXIUM [Suspect]
     Route: 048
     Dates: start: 20110701

REACTIONS (1)
  - FAECES DISCOLOURED [None]
